FAERS Safety Report 18883629 (Version 1)
Quarter: 2021Q1

REPORT INFORMATION
  Report Type: Spontaneous
  Country: US (occurrence: US)
  Receive Date: 20210211
  Receipt Date: 20210211
  Transmission Date: 20210420
  Serious: Yes (Other)
  Sender: FDA-Public Use
  Company Number: US-TEVA-2021-US-1877236

PATIENT
  Sex: Female

DRUGS (5)
  1. METHYLPREDNISOLONE. [Concomitant]
     Active Substance: METHYLPREDNISOLONE
     Indication: DEMYELINATION
     Route: 042
  2. TOCILIZUMAB. [Suspect]
     Active Substance: TOCILIZUMAB
     Indication: DEMYELINATION
     Route: 042
  3. PREDNISONE. [Suspect]
     Active Substance: PREDNISONE
     Dosage: 60 MILLIGRAM DAILY; 60 MG/DAY WITH A SLOW 6 MONTH TAPER
     Route: 048
  4. RITUXIMAB. [Suspect]
     Active Substance: RITUXIMAB
     Indication: DEMYELINATION
     Route: 065
  5. PREDNISONE. [Suspect]
     Active Substance: PREDNISONE
     Indication: DEMYELINATION
     Dosage: 40?60MG
     Route: 048

REACTIONS (6)
  - Weight increased [Unknown]
  - Hyperlipidaemia [Unknown]
  - Treatment failure [Unknown]
  - Acne [Unknown]
  - Dyslipidaemia [Unknown]
  - Off label use [Unknown]
